FAERS Safety Report 19669702 (Version 2)
Quarter: 2021Q3

REPORT INFORMATION
  Report Type: Report from Study
  Country: PT (occurrence: PT)
  Receive Date: 20210806
  Receipt Date: 20210810
  Transmission Date: 20211014
  Serious: Yes (Other)
  Sender: FDA-Public Use
  Company Number: PT-PFIZER INC-202100968721

PATIENT
  Age: 5 Year
  Sex: Female
  Weight: 16.6 kg

DRUGS (1)
  1. LORLATINIB [Suspect]
     Active Substance: LORLATINIB
     Dosage: 75 MG, 1X/DAY
     Route: 048
     Dates: start: 20210719, end: 20210728

REACTIONS (7)
  - Off label use [Recovered/Resolved]
  - Odynophagia [Recovered/Resolved]
  - Nervous system disorder [Recovering/Resolving]
  - Crying [Recovering/Resolving]
  - Mood altered [Recovering/Resolving]
  - Amnesia [Recovering/Resolving]
  - Frustration tolerance decreased [Recovering/Resolving]

NARRATIVE: CASE EVENT DATE: 20210719
